FAERS Safety Report 6254863-8 (Version None)
Quarter: 2009Q2

REPORT INFORMATION
  Report Type: 
  Country: None (occurrence: None)
  Receive Date: 20090630
  Receipt Date: 20090623
  Transmission Date: 20091009
  Serious: Yes (Hospitalization)
  Sender: FDA-Public Use
  Company Number: 2009AL004236

PATIENT
  Age: 68 Year
  Sex: Male

DRUGS (11)
  1. AMLODIPINE BESYLATE [Suspect]
     Indication: HYPERTENSION
     Dosage: 10 MG;
  2. MOXONIDINE [Concomitant]
  3. IRBESARTAN [Concomitant]
  4. BISOPROLOL FUMARATE [Concomitant]
  5. OMEPRAZOLE [Concomitant]
  6. CITALOPRAM HYDROBROMIDE [Concomitant]
  7. ATORVASTATIN CALCIUM [Concomitant]
  8. CLOPIDOGREL [Concomitant]
  9. PARACETAMOL [Concomitant]
  10. LACTULOSE [Concomitant]
  11. CETIRIZINE [Concomitant]

REACTIONS (4)
  - CONVULSION [None]
  - GOUT [None]
  - MUSCLE SPASMS [None]
  - MYALGIA [None]
